FAERS Safety Report 25963837 (Version 1)
Quarter: 2025Q4

REPORT INFORMATION
  Report Type: Spontaneous
  Country: US (occurrence: None)
  Receive Date: 20251027
  Receipt Date: 20251027
  Transmission Date: 20260117
  Serious: Yes (Other)
  Sender: FDA-CTU
  Company Number: None

PATIENT
  Age: 36 Year
  Sex: Female

DRUGS (1)
  1. DIMETHYL FUMARATE [Suspect]
     Active Substance: DIMETHYL FUMARATE
     Dosage: OTHER QUANTITY : 120MG, 240MG ;?OTHER FREQUENCY : ILLEGIBLE TO READ ;?

REACTIONS (3)
  - Optic neuritis [None]
  - Condition aggravated [None]
  - Vitreous floaters [None]
